FAERS Safety Report 4961274-1 (Version None)
Quarter: 2006Q1

REPORT INFORMATION
  Report Type: 
  Country: None (occurrence: None)
  Receive Date: 20060328
  Receipt Date: 20060314
  Transmission Date: 20060701
  Serious: Yes (Death, Other)
  Sender: FDA-Public Use
  Company Number: SI-2006-005916

PATIENT
  Age: 26 Year
  Sex: Female

DRUGS (1)
  1. BETAFERON [Suspect]
     Indication: RELAPSING-REMITTING MULTIPLE SCLEROSIS
     Dates: start: 19990101, end: 20020501

REACTIONS (20)
  - APHASIA [None]
  - BRAIN COMPRESSION [None]
  - CENTRAL NERVOUS SYSTEM LESION [None]
  - CEREBELLAR SYNDROME [None]
  - COMPLEX PARTIAL SEIZURES [None]
  - COORDINATION ABNORMAL [None]
  - DEMYELINATION [None]
  - DYSGRAPHIA [None]
  - FACIAL PALSY [None]
  - GAIT DISTURBANCE [None]
  - GERSTMANN'S SYNDROME [None]
  - GRAND MAL CONVULSION [None]
  - HEMIPARESIS [None]
  - HYPOAESTHESIA [None]
  - MALIGNANT NEOPLASM PROGRESSION [None]
  - MALIGNANT OLIGODENDROGLIOMA [None]
  - MALIGNANT TRANSFORMATION [None]
  - NEOPLASM MALIGNANT [None]
  - PERONEAL NERVE PALSY [None]
  - SPEECH DISORDER [None]
